FAERS Safety Report 8428461 (Version 2)
Quarter: 2012Q4

REPORT INFORMATION
  Report Type: 
  Country: FR (occurrence: FR)
  Receive Date: 20120227
  Receipt Date: 20120911
  Transmission Date: 20130627
  Serious: Yes (Other)
  Sender: FDA-Public Use
  Company Number: FR-ABBOTT-12P-056-0905528-00

PATIENT
  Age: 26 None
  Sex: Female

DRUGS (4)
  1. ZECLAR [Suspect]
     Indication: HELICOBACTER GASTRITIS
     Route: 048
     Dates: start: 201105, end: 201105
  2. AMOXICILLIN [Suspect]
     Indication: HELICOBACTER GASTRITIS
     Route: 048
     Dates: start: 201105, end: 201105
  3. OMEPRAZOLE [Suspect]
     Indication: HELICOBACTER GASTRITIS
     Route: 048
     Dates: start: 201105, end: 201105
  4. INIPOMP [Concomitant]
     Indication: GASTRITIS

REACTIONS (2)
  - Angioedema [Recovered/Resolved]
  - Hypersensitivity [Recovered/Resolved]
